FAERS Safety Report 18749510 (Version 2)
Quarter: 2021Q1

REPORT INFORMATION
  Report Type: Spontaneous
  Country: IT (occurrence: IT)
  Receive Date: 20210116
  Receipt Date: 20210121
  Transmission Date: 20210419
  Serious: Yes (Other)
  Sender: FDA-Public Use
  Company Number: IT-TEVA-2021-IT-1869583

PATIENT
  Age: 21 Year
  Sex: Male

DRUGS (1)
  1. ISOTRETINOINA DIFA COOPER [Suspect]
     Active Substance: ISOTRETINOIN
     Dosage: 30 MILLIGRAM DAILY; ISOTRETINOINA DIFA COOPER 10 MG, ISOTRETINOINA DIFA COOPER 20 MG
     Dates: start: 20201230

REACTIONS (10)
  - Blood pressure decreased [Recovering/Resolving]
  - Erectile dysfunction [Recovering/Resolving]
  - Myalgia [Recovered/Resolved]
  - Back pain [Recovered/Resolved]
  - Fatigue [Recovering/Resolving]
  - Depressed level of consciousness [Recovering/Resolving]
  - Hair texture abnormal [Recovering/Resolving]
  - Headache [Recovering/Resolving]
  - Dry eye [Recovering/Resolving]
  - Arthralgia [Recovered/Resolved]

NARRATIVE: CASE EVENT DATE: 20201231
